FAERS Safety Report 8352036-6 (Version None)
Quarter: 2012Q2

REPORT INFORMATION
  Report Type: 
  Country: None (occurrence: None)
  Receive Date: 20120511
  Receipt Date: 20120430
  Transmission Date: 20120825
  Serious: Yes (Hospitalization)
  Sender: FDA-Public Use
  Company Number: US-CELGENEUS-163-21880-12040775

PATIENT
  Sex: Female

DRUGS (9)
  1. REVLIMID [Suspect]
     Dosage: 50 MILLIGRAM
     Route: 048
     Dates: start: 20120307
  2. OXYCODONE HCL [Concomitant]
     Indication: PAIN
     Dosage: 5 MILLIGRAM
     Route: 048
  3. VIDAZA [Suspect]
     Dosage: 75 MILLIGRAM/SQ. METER
     Route: 065
     Dates: start: 20120307
  4. BUPROPION HCL [Concomitant]
     Dosage: 100 MILLIGRAM
     Route: 048
  5. VENLAFAXINE [Concomitant]
     Dosage: 37.5 MILLIGRAM
     Route: 048
  6. ACYCLOVIR [Concomitant]
     Dosage: 400 MILLIGRAM
     Route: 048
  7. NADOLOL [Concomitant]
     Dosage: 40 MILLIGRAM
     Route: 048
  8. TRAZODONE HCL [Concomitant]
     Dosage: 150 MILLIGRAM
     Route: 048
  9. ZOFRAN [Concomitant]
     Dosage: 8 MILLIGRAM
     Route: 048

REACTIONS (2)
  - FEBRILE NEUTROPENIA [None]
  - OESOPHAGITIS [None]
